FAERS Safety Report 10013564 (Version 2)
Quarter: 2014Q1

REPORT INFORMATION
  Report Type: Spontaneous
  Country: IT (occurrence: IT)
  Receive Date: 20140315
  Receipt Date: 20140322
  Transmission Date: 20141002
  Serious: Yes (Other)
  Sender: FDA-Public Use
  Company Number: IT-ROCHE-1365103

PATIENT
  Age: 50 Year
  Sex: Male
  Weight: 75 kg

DRUGS (3)
  1. PEGASYS [Suspect]
     Indication: ANTIVIRAL TREATMENT
     Route: 058
     Dates: start: 20130909, end: 20140225
  2. COPEGUS [Interacting]
     Indication: ANTIVIRAL TREATMENT
     Dosage: ON 29/OCT/2013, DOSE REDUCED TO 3 TABLETS PER DAY
     Route: 048
     Dates: start: 20130909, end: 20140225
  3. VICTRELIS [Interacting]
     Indication: ANTIVIRAL TREATMENT
     Route: 048
     Dates: start: 20131011, end: 20140225

REACTIONS (2)
  - Drug interaction [Unknown]
  - Pancytopenia [Recovering/Resolving]
